FAERS Safety Report 13190332 (Version 5)
Quarter: 2019Q1

REPORT INFORMATION
  Report Type: Spontaneous
  Country: JP (occurrence: JP)
  Receive Date: 20170206
  Receipt Date: 20190301
  Transmission Date: 20190417
  Serious: Yes (Hospitalization, Other)
  Sender: FDA-Public Use
  Company Number: JP-MALLINCKRODT-T201505164

PATIENT
  Age: 63 Year
  Sex: Male
  Weight: 65 kg

DRUGS (86)
  1. DEXART [Concomitant]
     Active Substance: DEXAMETHASONE SODIUM PHOSPHATE
     Dosage: 6.6 MG, UNK
     Route: 051
     Dates: start: 20151117, end: 20151117
  2. DEXART [Concomitant]
     Active Substance: DEXAMETHASONE SODIUM PHOSPHATE
     Dosage: 6.6 MG, UNK
     Route: 051
     Dates: start: 20160614, end: 20160614
  3. POLARAMINE [Concomitant]
     Active Substance: DEXCHLORPHENIRAMINE MALEATE
     Dosage: 5 MG, UNK
     Route: 051
     Dates: start: 20160329, end: 20160329
  4. ALOXI [Concomitant]
     Active Substance: PALONOSETRON HYDROCHLORIDE
     Dosage: 0.75 MG, UNK
     Route: 051
     Dates: start: 20151117, end: 20151117
  5. ELPLAT [Concomitant]
     Active Substance: OXALIPLATIN
     Dosage: 140 MG, UNK
     Route: 051
     Dates: start: 20151117, end: 20151117
  6. ELPLAT [Concomitant]
     Active Substance: OXALIPLATIN
     Dosage: 140 MG, UNK
     Route: 051
     Dates: start: 20160329, end: 20160329
  7. ELPLAT [Concomitant]
     Active Substance: OXALIPLATIN
     Dosage: 140 MG, UNK
     Route: 051
     Dates: start: 20160614, end: 20160614
  8. 5-FU [Concomitant]
     Active Substance: FLUOROURACIL
     Dosage: 2100 MG, UNK
     Route: 051
     Dates: start: 20151117, end: 20151118
  9. 5-FU [Concomitant]
     Active Substance: FLUOROURACIL
     Dosage: 700 MG, UNK
     Route: 051
     Dates: start: 20160202, end: 20160202
  10. 5-FU [Concomitant]
     Active Substance: FLUOROURACIL
     Dosage: 700 MG, UNK
     Route: 051
     Dates: start: 20160510, end: 20160510
  11. METHADONE [Suspect]
     Active Substance: METHADONE HYDROCHLORIDE
     Indication: CANCER PAIN
     Dosage: 10 MG ONE TIME DOSE (30 MG DAILY DOSE)
     Route: 048
     Dates: start: 20150914, end: 20150929
  12. GLUCOSE [Concomitant]
     Active Substance: DEXTROSE
     Dosage: 1000 ML, UNK
     Route: 051
     Dates: start: 20151117, end: 20151117
  13. POLARAMINE [Concomitant]
     Active Substance: DEXCHLORPHENIRAMINE MALEATE
     Indication: PROPHYLAXIS
     Dosage: 5 MG, UNK
     Route: 051
     Dates: start: 20151102, end: 20151102
  14. POLARAMINE [Concomitant]
     Active Substance: DEXCHLORPHENIRAMINE MALEATE
     Dosage: 5 MG, UNK
     Route: 051
     Dates: start: 20160906, end: 20160906
  15. ALOXI [Concomitant]
     Active Substance: PALONOSETRON HYDROCHLORIDE
     Dosage: 0.75 MG, UNK
     Route: 051
     Dates: start: 20160202, end: 20160202
  16. ELPLAT [Concomitant]
     Active Substance: OXALIPLATIN
     Dosage: 140 MG, UNK
     Route: 065
     Dates: start: 20160712, end: 20160712
  17. 5-FU [Concomitant]
     Active Substance: FLUOROURACIL
     Dosage: 700 MG, UNK
     Route: 051
     Dates: start: 20151117, end: 20151117
  18. 5-FU [Concomitant]
     Active Substance: FLUOROURACIL
     Dosage: 4200 MG, UNK
     Route: 051
     Dates: start: 20160329, end: 20160331
  19. 5-FU [Concomitant]
     Active Substance: FLUOROURACIL
     Dosage: 4900 MG, UNK
     Route: 065
     Dates: start: 20160712, end: 20160712
  20. DEXART [Concomitant]
     Active Substance: DEXAMETHASONE SODIUM PHOSPHATE
     Dosage: 6.6 MG, UNK
     Route: 051
     Dates: start: 20160809, end: 20160809
  21. ALOXI [Concomitant]
     Active Substance: PALONOSETRON HYDROCHLORIDE
     Dosage: 0.75 MG, UNK
     Route: 051
     Dates: start: 20160906, end: 20160906
  22. ISOVORIN [Concomitant]
     Active Substance: LEUCOVORIN CALCIUM
     Dosage: 350 MG, UNK
     Route: 051
     Dates: start: 20160202, end: 20160202
  23. ISOVORIN [Concomitant]
     Active Substance: LEUCOVORIN CALCIUM
     Dosage: 350 MG, UNK
     Route: 051
     Dates: start: 20160906, end: 20160906
  24. ELPLAT [Concomitant]
     Active Substance: OXALIPLATIN
     Indication: ANAL CANCER
     Dosage: 140 MG, UNK
     Route: 051
     Dates: start: 20151102, end: 20151102
  25. ISOTONIC SODIUM CHLORIDE SOLUTION [Concomitant]
     Active Substance: SODIUM CHLORIDE
     Indication: PRODUCT USED FOR UNKNOWN INDICATION
     Dosage: 65 ML, UNK
     Route: 051
     Dates: start: 20151102, end: 20151102
  26. 5-FU [Concomitant]
     Active Substance: FLUOROURACIL
     Dosage: 2100 MG, UNK
     Route: 051
     Dates: start: 20160202, end: 20160202
  27. HEPARIN SODIUM. [Concomitant]
     Active Substance: HEPARIN SODIUM
     Dosage: 2500 IU
     Route: 051
     Dates: start: 20151117, end: 20151118
  28. LIDOCAINE. [Concomitant]
     Active Substance: LIDOCAINE
     Indication: ANALGESIC THERAPY
     Dosage: 10 ML, UNK
     Route: 051
     Dates: start: 20151111, end: 20151111
  29. LYRICA [Concomitant]
     Active Substance: PREGABALIN
     Dosage: 50 MG, UNK
     Route: 048
     Dates: start: 20160301, end: 20160530
  30. DEXART [Concomitant]
     Active Substance: DEXAMETHASONE SODIUM PHOSPHATE
     Dosage: 6.6 MG, UNK
     Route: 051
     Dates: start: 20160202, end: 20160202
  31. DEXART [Concomitant]
     Active Substance: DEXAMETHASONE SODIUM PHOSPHATE
     Dosage: 6.6 MG, UNK
     Route: 051
     Dates: start: 20160329, end: 20160329
  32. POLARAMINE [Concomitant]
     Active Substance: DEXCHLORPHENIRAMINE MALEATE
     Dosage: 5 MG, UNK
     Route: 051
     Dates: start: 20160202, end: 20160202
  33. ALOXI [Concomitant]
     Active Substance: PALONOSETRON HYDROCHLORIDE
     Dosage: 0.75 MG, UNK
     Route: 051
     Dates: start: 20160809, end: 20160809
  34. ISOVORIN [Concomitant]
     Active Substance: LEUCOVORIN CALCIUM
     Indication: ANAL CANCER
     Dosage: 350 MG, UNK
     Route: 051
     Dates: start: 20151102, end: 20151102
  35. ELPLAT [Concomitant]
     Active Substance: OXALIPLATIN
     Dosage: 140 MG, UNK
     Route: 065
     Dates: start: 20160906, end: 20160906
  36. 5-FU [Concomitant]
     Active Substance: FLUOROURACIL
     Indication: ANAL CANCER
     Dosage: 700 MG, UNK
     Route: 051
     Dates: start: 20151102, end: 20151102
  37. 5-FU [Concomitant]
     Active Substance: FLUOROURACIL
     Dosage: 4900 MG, UNK
     Route: 065
     Dates: start: 20160809, end: 20160809
  38. HEPARIN SODIUM. [Concomitant]
     Active Substance: HEPARIN SODIUM
     Dosage: 2500 IU
     Route: 051
     Dates: start: 20160202, end: 20160203
  39. METHADONE [Suspect]
     Active Substance: METHADONE HYDROCHLORIDE
     Dosage: 20MG DAILY DOSE
     Route: 048
     Dates: start: 20160315, end: 20160510
  40. LOXOPROFEN SODIUM [Concomitant]
     Active Substance: LOXOPROFEN SODIUM
     Dosage: 60 MG, UNK
     Route: 048
     Dates: start: 20160712, end: 20160809
  41. DEXART [Concomitant]
     Active Substance: DEXAMETHASONE SODIUM PHOSPHATE
     Dosage: 6.6 MG, UNK
     Route: 051
     Dates: start: 20160510, end: 20160510
  42. ALOXI [Concomitant]
     Active Substance: PALONOSETRON HYDROCHLORIDE
     Dosage: 0.75 MG, UNK
     Route: 051
     Dates: start: 20160510, end: 20160510
  43. ISOVORIN [Concomitant]
     Active Substance: LEUCOVORIN CALCIUM
     Dosage: 350 MG, UNK
     Route: 051
     Dates: start: 20160329, end: 20160329
  44. 5-FU [Concomitant]
     Active Substance: FLUOROURACIL
     Dosage: 2100 MG, UNK
     Route: 051
     Dates: start: 20151102, end: 20151103
  45. 5-FU [Concomitant]
     Active Substance: FLUOROURACIL
     Dosage: 4200 MG, UNK
     Route: 051
     Dates: start: 20160614, end: 20160616
  46. HEPARIN SODIUM. [Concomitant]
     Active Substance: HEPARIN SODIUM
     Indication: PRODUCT USED FOR UNKNOWN INDICATION
     Dosage: 2500 IU
     Route: 051
     Dates: start: 20151102, end: 20151103
  47. METHADONE [Suspect]
     Active Substance: METHADONE HYDROCHLORIDE
     Dosage: 25MG DAILY DOSE
     Route: 048
     Dates: start: 20160511
  48. LOXOPROFEN SODIUM [Concomitant]
     Active Substance: LOXOPROFEN SODIUM
     Indication: ANALGESIC THERAPY
     Dosage: 180 MG, UNK
     Route: 048
     Dates: start: 20151027, end: 20160329
  49. DEXART [Concomitant]
     Active Substance: DEXAMETHASONE SODIUM PHOSPHATE
     Dosage: 6.6 MG, UNK
     Route: 051
     Dates: start: 20160906, end: 20160906
  50. POLARAMINE [Concomitant]
     Active Substance: DEXCHLORPHENIRAMINE MALEATE
     Dosage: 5 MG, UNK
     Route: 051
     Dates: start: 20151117, end: 20151117
  51. POLARAMINE [Concomitant]
     Active Substance: DEXCHLORPHENIRAMINE MALEATE
     Dosage: 5 MG, UNK
     Route: 051
     Dates: start: 20160809, end: 20160809
  52. ALOXI [Concomitant]
     Active Substance: PALONOSETRON HYDROCHLORIDE
     Indication: PROPHYLAXIS
     Dosage: 0.75 MG, UNK
     Route: 051
     Dates: start: 20151102, end: 20151102
  53. ALOXI [Concomitant]
     Active Substance: PALONOSETRON HYDROCHLORIDE
     Dosage: 0.75 MG, UNK
     Route: 051
     Dates: start: 20160614, end: 20160614
  54. ISOVORIN [Concomitant]
     Active Substance: LEUCOVORIN CALCIUM
     Dosage: 350 MG, UNK
     Route: 051
     Dates: start: 20160712, end: 20160712
  55. ELPLAT [Concomitant]
     Active Substance: OXALIPLATIN
     Dosage: 140 MG, UNK
     Route: 051
     Dates: start: 20160202, end: 20160202
  56. ELPLAT [Concomitant]
     Active Substance: OXALIPLATIN
     Dosage: 140 MG, UNK
     Route: 051
     Dates: start: 20160510, end: 20160510
  57. ELPLAT [Concomitant]
     Active Substance: OXALIPLATIN
     Dosage: 140 MG, UNK
     Route: 065
     Dates: start: 20160809, end: 20160809
  58. ISOTONIC SODIUM CHLORIDE SOLUTION [Concomitant]
     Active Substance: SODIUM CHLORIDE
     Dosage: 200 ML, UNK
     Route: 051
     Dates: start: 20151211, end: 20151217
  59. 5-FU [Concomitant]
     Active Substance: FLUOROURACIL
     Dosage: 700 MG, UNK
     Route: 051
     Dates: start: 20160329, end: 20160329
  60. 5-FU [Concomitant]
     Active Substance: FLUOROURACIL
     Dosage: 700 MG, UNK
     Route: 051
     Dates: start: 20160614, end: 20160614
  61. CELECOX [Concomitant]
     Active Substance: CELECOXIB
     Indication: PRODUCT USED FOR UNKNOWN INDICATION
     Dosage: 200 MG
     Route: 048
     Dates: start: 20160531
  62. METHADONE [Suspect]
     Active Substance: METHADONE HYDROCHLORIDE
     Dosage: 35MG DAILY DOSE
     Route: 048
     Dates: start: 20150929, end: 20151227
  63. OXYNORM [Concomitant]
     Active Substance: OXYCODONE HYDROCHLORIDE
     Indication: ANALGESIC THERAPY
     Dosage: 10 MG, PRN
     Route: 048
     Dates: start: 20150913
  64. LONSURF [Concomitant]
     Active Substance: TIPIRACIL HYDROCHLORIDE\TRIFLURIDINE
     Indication: PRODUCT USED FOR UNKNOWN INDICATION
     Dosage: 120 MG, UNK
     Route: 048
     Dates: end: 20150916
  65. DEXART [Concomitant]
     Active Substance: DEXAMETHASONE SODIUM PHOSPHATE
     Dosage: 6.6 MG, UNK
     Route: 051
     Dates: start: 20160712, end: 20160712
  66. POLARAMINE [Concomitant]
     Active Substance: DEXCHLORPHENIRAMINE MALEATE
     Dosage: 5 MG, UNK
     Route: 051
     Dates: start: 20160510, end: 20160510
  67. ISOVORIN [Concomitant]
     Active Substance: LEUCOVORIN CALCIUM
     Dosage: 350 MG, UNK
     Route: 051
     Dates: start: 20160510, end: 20160510
  68. ISOVORIN [Concomitant]
     Active Substance: LEUCOVORIN CALCIUM
     Dosage: 350 MG, UNK
     Route: 051
     Dates: start: 20160614, end: 20160614
  69. 5-FU [Concomitant]
     Active Substance: FLUOROURACIL
     Dosage: 4200 MG, UNK
     Route: 051
     Dates: start: 20160510, end: 20160512
  70. 5-FU [Concomitant]
     Active Substance: FLUOROURACIL
     Dosage: 4900 MG, UNK
     Route: 065
     Dates: start: 20160906, end: 20160906
  71. REBAMIPIDE [Concomitant]
     Active Substance: REBAMIPIDE
     Indication: PROPHYLAXIS
     Dosage: 100 MG, UNK
     Route: 048
     Dates: start: 20160712
  72. METHADONE [Suspect]
     Active Substance: METHADONE HYDROCHLORIDE
     Dosage: 10 MG ONE TIME DOSE (30 MG DAILY DOSE)
     Route: 048
     Dates: start: 20151228, end: 20160111
  73. LYRICA [Concomitant]
     Active Substance: PREGABALIN
     Indication: ANALGESIC THERAPY
     Dosage: 150 MG, UNK
     Route: 048
     Dates: end: 20150918
  74. POLARAMINE [Concomitant]
     Active Substance: DEXCHLORPHENIRAMINE MALEATE
     Dosage: 5 MG, UNK
     Route: 051
     Dates: start: 20160614, end: 20160614
  75. POLARAMINE [Concomitant]
     Active Substance: DEXCHLORPHENIRAMINE MALEATE
     Dosage: 5 MG, UNK
     Route: 051
     Dates: start: 20160712, end: 20160712
  76. ALOXI [Concomitant]
     Active Substance: PALONOSETRON HYDROCHLORIDE
     Dosage: 0.75 MG, UNK
     Route: 051
     Dates: start: 20160329, end: 20160329
  77. ALOXI [Concomitant]
     Active Substance: PALONOSETRON HYDROCHLORIDE
     Dosage: 0.75 MG, UNK
     Route: 051
     Dates: start: 20160712, end: 20160712
  78. ISOVORIN [Concomitant]
     Active Substance: LEUCOVORIN CALCIUM
     Dosage: 350 MG, UNK
     Route: 051
     Dates: start: 20151117, end: 20151117
  79. ISOVORIN [Concomitant]
     Active Substance: LEUCOVORIN CALCIUM
     Dosage: 350 MG, UNK
     Route: 051
     Dates: start: 20160809, end: 20160809
  80. ISOTONIC SODIUM CHLORIDE SOLUTION [Concomitant]
     Active Substance: SODIUM CHLORIDE
     Dosage: 65 ML, UNK
     Route: 051
     Dates: start: 20151117, end: 20151117
  81. LINOLOSAL [Concomitant]
     Active Substance: BETAMETHASONE SODIUM PHOSPHATE
     Indication: ANALGESIC THERAPY
     Dosage: 2 MG, UNK
     Route: 051
     Dates: start: 20151111, end: 20151111
  82. METHADONE [Suspect]
     Active Substance: METHADONE HYDROCHLORIDE
     Dosage: 5 MG ONE TIME DOSE (15 MG DAILY DOSE)
     Route: 048
     Dates: start: 20160112, end: 20160314
  83. NEXIUM [Concomitant]
     Active Substance: ESOMEPRAZOLE MAGNESIUM
     Indication: PRODUCT USED FOR UNKNOWN INDICATION
     Dosage: 20 MG, UNK
     Route: 048
     Dates: start: 20151110
  84. GLUCOSE [Concomitant]
     Active Substance: DEXTROSE
     Indication: PRODUCT USED FOR UNKNOWN INDICATION
     Dosage: 1000 ML, UNK
     Route: 051
     Dates: start: 20151102, end: 20151102
  85. GLUCOSE [Concomitant]
     Active Substance: DEXTROSE
     Dosage: 600 ML, UNK
     Route: 051
     Dates: start: 20160202, end: 20160202
  86. DEXART [Concomitant]
     Active Substance: DEXAMETHASONE SODIUM PHOSPHATE
     Indication: PROPHYLAXIS
     Dosage: 6.6 MG, UNK
     Route: 051
     Dates: start: 20151102, end: 20151102

REACTIONS (14)
  - Pneumonia [Recovered/Resolved]
  - Febrile neutropenia [Recovered/Resolved]
  - Pneumonia [Recovering/Resolving]
  - Neutrophil count decreased [Recovered/Resolved]
  - Dehydration [Recovered/Resolved]
  - Pneumonia [Recovered/Resolved]
  - Skin erosion [Not Recovered/Not Resolved]
  - Dehydration [Recovered/Resolved]
  - Nausea [Recovering/Resolving]
  - Pneumonia pneumococcal [Recovering/Resolving]
  - Constipation [Recovering/Resolving]
  - Somnolence [Recovered/Resolved]
  - Pyrexia [Recovered/Resolved]
  - Cough [Not Recovered/Not Resolved]

NARRATIVE: CASE EVENT DATE: 20150915
